FAERS Safety Report 18864983 (Version 1)
Quarter: 2021Q1

REPORT INFORMATION
  Report Type: Spontaneous
  Country: FR (occurrence: FR)
  Receive Date: 20210208
  Receipt Date: 20210208
  Transmission Date: 20210420
  Serious: Yes (Other)
  Sender: FDA-Public Use
  Company Number: FR-PFIZER INC-2021094702

PATIENT
  Age: 37 Year
  Sex: Male

DRUGS (5)
  1. BACLOFENE [Suspect]
     Active Substance: BACLOFEN
     Indication: PRODUCT SUBSTITUTION
     Dosage: UNK
     Route: 048
  2. METHADONE [Suspect]
     Active Substance: METHADONE HYDROCHLORIDE
     Indication: PRODUCT SUBSTITUTION
     Dosage: 40 MG, 1X/DAY
     Route: 048
  3. XANAX [Suspect]
     Active Substance: ALPRAZOLAM
     Dosage: 8 DF, 1X/DAY
     Route: 048
     Dates: start: 202010
  4. HEROIN [Suspect]
     Active Substance: DIAMORPHINE
     Dosage: 0.5 G, SINGLE
     Route: 045
     Dates: start: 20201214, end: 20201214
  5. LEXOMIL [Suspect]
     Active Substance: BROMAZEPAM
     Dosage: 9 DF, 1X/DAY
     Route: 048
     Dates: start: 202010

REACTIONS (2)
  - Drug abuse [Not Recovered/Not Resolved]
  - Depressed level of consciousness [Recovered/Resolved]

NARRATIVE: CASE EVENT DATE: 202010
